FAERS Safety Report 9827973 (Version 1)
Quarter: 2013Q4

REPORT INFORMATION
  Report Type: Spontaneous
  Country: US (occurrence: None)
  Receive Date: 20131120
  Receipt Date: 20131120
  Transmission Date: 20140711
  Serious: Yes (Other)
  Sender: FDA-Public Use
  Company Number: 2013035138

PATIENT
  Age: 15 Year
  Sex: Female

DRUGS (1)
  1. BERINERT [Suspect]
     Dates: start: 20130319, end: 20130319

REACTIONS (7)
  - Drug ineffective [None]
  - Headache [None]
  - Hereditary angioedema [None]
  - Spinal pain [None]
  - Back pain [None]
  - Condition aggravated [None]
  - Neck pain [None]
